FAERS Safety Report 7584242-2 (Version None)
Quarter: 2011Q2

REPORT INFORMATION
  Report Type: 
  Country: None (occurrence: None)
  Receive Date: 20110630
  Receipt Date: 20110624
  Transmission Date: 20111010
  Serious: Yes (Other)
  Sender: FDA-Public Use
  Company Number: IE-BRISTOL-MYERS SQUIBB COMPANY-15594286

PATIENT
  Age: 32 Year
  Sex: Female

DRUGS (4)
  1. ATAZANAVIR [Suspect]
     Indication: HIV INFECTION
     Route: 048
     Dates: start: 20090416
  2. TRUVADA [Suspect]
     Indication: HIV INFECTION
     Dosage: 1DF: 1 TABS
     Route: 048
     Dates: start: 20090416
  3. METHADONE HCL [Suspect]
  4. NORVIR [Suspect]
     Indication: HIV INFECTION
     Route: 048
     Dates: start: 20090416

REACTIONS (4)
  - DRUG EXPOSURE DURING PREGNANCY [None]
  - CERVICAL INCOMPETENCE [None]
  - ABORTION SPONTANEOUS [None]
  - PREGNANCY [None]
